FAERS Safety Report 4354021-8 (Version None)
Quarter: 2004Q2

REPORT INFORMATION
  Report Type: 
  Country: None (occurrence: None)
  Receive Date: 20040430
  Receipt Date: 20040421
  Transmission Date: 20050107
  Serious: No
  Sender: FDA-Public Use
  Company Number: 2004-115310-NL

PATIENT
  Age: 23 Year
  Sex: Female

DRUGS (2)
  1. DESOGESTREL AND ETHINYL ESTRADIOL [Suspect]
     Dosage: DF
  2. IBUPROFEN [Concomitant]

REACTIONS (4)
  - APHASIA [None]
  - CEREBROVASCULAR ACCIDENT [None]
  - EMBOLISM [None]
  - MUSCULAR WEAKNESS [None]
